FAERS Safety Report 8054215-4 (Version None)
Quarter: 2012Q1

REPORT INFORMATION
  Report Type: 
  Country: None (occurrence: None)
  Receive Date: 20120118
  Receipt Date: 20120116
  Transmission Date: 20120608
  Serious: Yes (Hospitalization, Other)
  Sender: FDA-Public Use
  Company Number: DE-ROCHE-793883

PATIENT
  Sex: Male
  Weight: 70 kg

DRUGS (21)
  1. LORAZEPAM [Concomitant]
     Dosage: TOTAL DAILY DOSE/ UNIT: BE VEDARF (NOT LEGIBLE).
  2. AMPHOTERICIN B [Concomitant]
     Dosage: 4DF/D
  3. CITALOPRAM HYDROBROMIDE [Concomitant]
  4. LEUCOVORIN CALCIUM [Suspect]
     Indication: COLORECTAL CANCER METASTATIC
     Dosage: DOSE: 400, UNITS: 2, FORM: INFUSION, REPORTED AS CALCIUM-FOLINAT.
     Route: 042
     Dates: start: 20110729, end: 20111110
  5. LEUCOVORIN CALCIUM [Suspect]
     Dosage: 400
  6. METOPROLOL TARTRATE [Concomitant]
     Dosage: 47.5 MG,3DF/D
  7. LEUCOVORIN CALCIUM [Suspect]
     Dosage: 400
     Route: 042
     Dates: start: 20111222
  8. OXALIPLATIN [Suspect]
     Indication: COLORECTAL CANCER METASTATIC
     Dosage: DOSE: 170, UNITS: 2, FORM: INFUSION.
     Route: 042
  9. NOVALGIN [Concomitant]
     Dosage: 40 DROPS,4DF/D
  10. FLUOROURACIL [Suspect]
     Indication: COLORECTAL CANCER METASTATIC
     Dosage: DOSE: 6400, UNITS: 2, FORM: INFUSION.
     Route: 042
  11. METOCLOPRAMIDE HYDROCHLORIDE [Concomitant]
     Dosage: TOTAL DAILY DOSE / UNIT: 20 TD
     Dates: start: 20110729, end: 20110801
  12. AVASTIN [Suspect]
     Indication: COLORECTAL CANCER METASTATIC
     Dosage: DOSE: 420, UNITS: 2, FORM: INFUSION.
     Route: 042
  13. AVASTIN [Suspect]
     Dosage: TEMPORARILY INTERRUPTED
     Route: 042
     Dates: start: 20111020, end: 20111110
  14. OXALIPLATIN [Suspect]
     Dosage: 170,
     Route: 042
  15. IRINOTECAN HYDROCHLORIDE [Suspect]
     Indication: COLORECTAL CANCER METASTATIC
     Dosage: DOSE: 330, UNITS: 2, FORM: INFUSION
     Route: 042
  16. CITALOPRAM HYDROBROMIDE [Concomitant]
     Dosage: 20 MG,1DF/D,DEUG REPORTEDAS CITALICH
  17. ENOXAPARIN SODIUM [Concomitant]
     Dosage: CLEXANE 80,2DF/D
     Route: 058
  18. IRINOTECAN HYDROCHLORIDE [Suspect]
     Route: 042
  19. ENALAPRIL MALEATE [Concomitant]
     Dosage: 2 DF/D
  20. FORTIMEL [Concomitant]
  21. MIRTAZAPINE [Concomitant]

REACTIONS (7)
  - ABDOMINAL PAIN [None]
  - NAUSEA [None]
  - OESOPHAGEAL CANDIDIASIS [None]
  - HAEMATOCHEZIA [None]
  - VOMITING [None]
  - DIARRHOEA [None]
  - DIARRHOEA HAEMORRHAGIC [None]
